FAERS Safety Report 10384539 (Version 1)
Quarter: 2014Q3

REPORT INFORMATION
  Report Type: Spontaneous
  Country: US (occurrence: US)
  Receive Date: 20140814
  Receipt Date: 20140814
  Transmission Date: 20150326
  Serious: Yes (Death)
  Sender: FDA-Public Use
  Company Number: US-CELGENEUS-163-50794-14081689

PATIENT
  Age: 77 Year
  Sex: Male

DRUGS (3)
  1. VALPROIC ACID. [Suspect]
     Active Substance: VALPROIC ACID
     Indication: ACUTE MYELOID LEUKAEMIA
     Route: 065
  2. ATRA [Suspect]
     Active Substance: TRETINOIN
     Indication: ACUTE MYELOID LEUKAEMIA
     Route: 065
  3. VIDAZA [Suspect]
     Active Substance: AZACITIDINE
     Indication: ACUTE MYELOID LEUKAEMIA
     Route: 065

REACTIONS (1)
  - Staphylococcal sepsis [Fatal]
